FAERS Safety Report 18301893 (Version 1)
Quarter: 2020Q3

REPORT INFORMATION
  Report Type: Spontaneous
  Country: CN (occurrence: CN)
  Receive Date: 20200923
  Receipt Date: 20200923
  Transmission Date: 20201103
  Serious: Yes (Hospitalization, Other)
  Sender: FDA-Public Use
  Company Number: CN-PFIZER INC-2020363615

PATIENT
  Age: 24 Year
  Sex: Female
  Weight: 50 kg

DRUGS (4)
  1. SOLU?MEDROL [Suspect]
     Active Substance: METHYLPREDNISOLONE SODIUM SUCCINATE
     Dosage: 500.000 MG, 1X/DAY
     Route: 041
     Dates: start: 20200819, end: 20200821
  2. SAI KE PING [Suspect]
     Active Substance: MYCOPHENOLATE MOFETIL
     Indication: THERAPEUTIC PROCEDURE
     Dosage: 0.500 MG, 2X/DAY
     Route: 041
     Dates: start: 20200822, end: 20200910
  3. BENLYSTA [Suspect]
     Active Substance: BELIMUMAB
     Indication: THERAPEUTIC PROCEDURE
     Dosage: 600.000 MG, 1X/DAY
     Route: 041
     Dates: start: 20200830, end: 20200830
  4. SOLU?MEDROL [Suspect]
     Active Substance: METHYLPREDNISOLONE SODIUM SUCCINATE
     Indication: THERAPEUTIC PROCEDURE
     Dosage: 40.000 MG, 1X/DAY
     Route: 041
     Dates: start: 20200816, end: 20200910

REACTIONS (5)
  - Pulmonary mycosis [Recovering/Resolving]
  - Fungal infection [Recovering/Resolving]
  - Urine output decreased [Recovering/Resolving]
  - Bacterial infection [Recovering/Resolving]
  - Pulmonary oedema [Recovering/Resolving]

NARRATIVE: CASE EVENT DATE: 20200903
